FAERS Safety Report 10696035 (Version 1)
Quarter: 2015Q1

REPORT INFORMATION
  Report Type: Spontaneous
  Country: HR (occurrence: HR)
  Receive Date: 20150107
  Receipt Date: 20150107
  Transmission Date: 20150721
  Serious: Yes (Other)
  Sender: FDA-Public Use
  Company Number: HR-BAUSCH-BL-2014-011333

PATIENT
  Age: 60 Year
  Sex: Female

DRUGS (1)
  1. LUXFEN [Suspect]
     Active Substance: BRIMONIDINE TARTRATE
     Indication: GLAUCOMA

REACTIONS (3)
  - Vertigo [Recovered/Resolved]
  - Hypertensive crisis [Recovered/Resolved]
  - Fatigue [Recovered/Resolved]
